FAERS Safety Report 9222242 (Version 1)
Quarter: 2013Q1

REPORT INFORMATION
  Report Type: Spontaneous
  Country: US (occurrence: US)
  Receive Date: 20120910
  Receipt Date: 20120910
  Transmission Date: 20140127
  Serious: No
  Sender: FDA-Public Use
  Company Number: 1206USA00787

PATIENT
  Sex: 0

DRUGS (1)
  1. ZIOPTAN (TAFLUPROST) EYE DROPS, SOLUTION, 0.0015% [Suspect]
     Route: 047

REACTIONS (1)
  - Urinary tract infection [None]
